FAERS Safety Report 8041826-5 (Version None)
Quarter: 2012Q1

REPORT INFORMATION
  Report Type: 
  Country: None (occurrence: None)
  Receive Date: 20120112
  Receipt Date: 20120110
  Transmission Date: 20120608
  Serious: Yes (Other)
  Sender: FDA-Public Use
  Company Number: US-PFIZER INC-2012008385

PATIENT
  Sex: Female
  Weight: 52.2 kg

DRUGS (3)
  1. PREMARIN [Suspect]
     Indication: HYPERTONIC BLADDER
     Dosage: UNK, TWO TIMES A WEEK
     Route: 067
     Dates: start: 20110101
  2. PREMARIN [Suspect]
     Indication: OFF LABEL USE
     Dosage: UNK, DAILY
     Route: 067
     Dates: start: 20110101, end: 20110101
  3. VITAMIN TAB [Concomitant]
     Dosage: 1 TABLET IN MORNING AND 1.5 TABLET AT NIGHT
     Route: 048

REACTIONS (1)
  - URINARY TRACT INFECTION [None]
